FAERS Safety Report 9912994 (Version 1)
Quarter: 2014Q1

REPORT INFORMATION
  Report Type: Spontaneous
  Country: FR (occurrence: None)
  Receive Date: 20140214
  Receipt Date: 20140214
  Transmission Date: 20141002
  Serious: Yes (Hospitalization)
  Sender: FDA-Public Use
  Company Number: FK201400424

PATIENT
  Age: 79 Year
  Sex: Female

DRUGS (3)
  1. PIPERACILLIN / TAZOBACTAM [Suspect]
     Indication: DIVERTICULITIS
     Dosage: 3 IN 1 D
     Dates: start: 20131122, end: 20131130
  2. LOVENOX (ENOXAPARIN SODIUM)(ENOXAPARIN SODIUM) [Concomitant]
  3. TARDYFERON (FERROUS SULFATE)(FERROUS SULFATE) [Concomitant]

REACTIONS (2)
  - Acute generalised exanthematous pustulosis [None]
  - Rectal haemorrhage [None]
